FAERS Safety Report 5788967-0 (Version None)
Quarter: 2008Q2

REPORT INFORMATION
  Report Type: 
  Country: None (occurrence: None)
  Receive Date: 20080626
  Receipt Date: 20080122
  Transmission Date: 20081010
  Serious: No
  Sender: FDA-Public Use
  Company Number: US-ASTRAZENECA-2007UW26323

PATIENT
  Age: 67 Year
  Sex: Male
  Weight: 71.7 kg

DRUGS (4)
  1. PULMICORT FLEXHALER [Suspect]
     Indication: ASTHMA
     Dosage: 180 MCG, ONE PUFF TWICE A DAY
     Route: 055
  2. ALBUTEROL [Concomitant]
  3. FLONASE [Concomitant]
  4. PREDNISONE [Concomitant]

REACTIONS (5)
  - COUGH [None]
  - DYSPNOEA [None]
  - HYPOAESTHESIA ORAL [None]
  - PHARYNGITIS [None]
  - THROAT IRRITATION [None]
